FAERS Safety Report 8187214-2 (Version None)
Quarter: 2012Q1

REPORT INFORMATION
  Report Type: 
  Country: None (occurrence: None)
  Receive Date: 20120306
  Receipt Date: 20120227
  Transmission Date: 20120608
  Serious: Yes (Other)
  Sender: FDA-Public Use
  Company Number: CA-JNJFOC-20120213898

PATIENT
  Sex: Male
  Weight: 87 kg

DRUGS (4)
  1. REMICADE [Suspect]
     Indication: CROHN'S DISEASE
     Route: 042
     Dates: start: 20110405
  2. REMICADE [Suspect]
     Dosage: 7TH INFUSION
     Route: 042
     Dates: start: 20120101
  3. CHOLESTYRAMINE [Concomitant]
  4. REMERON [Concomitant]

REACTIONS (2)
  - STAPHYLOCOCCAL INFECTION [None]
  - SKIN CANCER [None]
